FAERS Safety Report 15886676 (Version 3)
Quarter: 2019Q1

REPORT INFORMATION
  Report Type: Spontaneous
  Country: CN (occurrence: CN)
  Receive Date: 20190129
  Receipt Date: 20190307
  Transmission Date: 20190417
  Serious: Yes (Other)
  Sender: FDA-Public Use
  Company Number: CN-GILEAD-2019-0387667

PATIENT
  Age: 45 Year
  Sex: Male

DRUGS (1)
  1. ADEFOVIR DIPIVOXIL. [Suspect]
     Active Substance: ADEFOVIR DIPIVOXIL
     Indication: HEPATITIS B
     Dosage: 10 MG, UNK
     Route: 065

REACTIONS (13)
  - Chest pain [Unknown]
  - Pain [Unknown]
  - Pelvic pain [Unknown]
  - Fanconi syndrome acquired [Recovered/Resolved]
  - Bone density decreased [Recovering/Resolving]
  - Hypophosphataemia [Not Recovered/Not Resolved]
  - Blood creatinine increased [Recovered/Resolved]
  - Bone pain [Unknown]
  - Glucose urine present [Recovered/Resolved]
  - Protein urine [Recovered/Resolved]
  - Hypophosphataemic osteomalacia [Not Recovered/Not Resolved]
  - Renal failure [Not Recovered/Not Resolved]
  - Spinal pain [Unknown]
